FAERS Safety Report 4449994-9 (Version None)
Quarter: 2004Q3

REPORT INFORMATION
  Report Type: 
  Country: None (occurrence: None)
  Receive Date: 20040915
  Receipt Date: 20040901
  Transmission Date: 20050211
  Serious: Yes (Other)
  Sender: FDA-Public Use
  Company Number: PHBS2004JP11753

PATIENT
  Age: 25 Year
  Sex: Male

DRUGS (8)
  1. RITALIN [Suspect]
     Indication: DEPRESSION
     Dosage: 40 MG/D
     Route: 048
  2. RITALIN [Suspect]
     Dosage: 3 - 4 DF/D
     Route: 048
  3. MIANSERIN [Concomitant]
     Dosage: 20 MG/D
     Route: 065
  4. SULPIRIDE [Concomitant]
     Dosage: 300 MG/D
     Route: 065
  5. SULPIRIDE [Concomitant]
     Dosage: 60 MG/D
     Route: 042
  6. RITALIN [Suspect]
     Dosage: 45 MG/DAY
     Route: 042
  7. RITALIN [Suspect]
     Dosage: 1 DF, QD TO TID
     Route: 042
  8. FLUOXETINE [Concomitant]
     Dosage: 3 DF/DAY
     Route: 048

REACTIONS (2)
  - DRUG ABUSER [None]
  - THEFT [None]
